FAERS Safety Report 5479732-2 (Version None)
Quarter: 2007Q4

REPORT INFORMATION
  Report Type: 
  Country: None (occurrence: None)
  Receive Date: 20071008
  Receipt Date: 20070928
  Transmission Date: 20080405
  Serious: Yes (Hospitalization)
  Sender: FDA-Public Use
  Company Number: ES-JNJFOC-20070905796

PATIENT
  Age: 50 Year
  Sex: Male

DRUGS (1)
  1. TAVANIC [Suspect]
     Indication: TULARAEMIA
     Route: 048

REACTIONS (4)
  - PURPURA [None]
  - SKIN LESION [None]
  - STOMATITIS NECROTISING [None]
  - THROMBOCYTOPENIA [None]
